FAERS Safety Report 14488388 (Version 3)
Quarter: 2018Q4

REPORT INFORMATION
  Report Type: Report from Study
  Country: US (occurrence: US)
  Receive Date: 20180205
  Receipt Date: 20181005
  Transmission Date: 20190204
  Serious: Yes (Other)
  Sender: FDA-Public Use
  Company Number: US-PFIZER INC-2018047218

PATIENT
  Sex: Female

DRUGS (1)
  1. ZOLEDRONIC ACID [Suspect]
     Active Substance: ZOLEDRONIC ACID
     Dosage: UNK (LONGER THAN 2 YEARS (MEAN 4.8 YEARS, RANGE 2.0-13 YEARS)

REACTIONS (2)
  - Osteonecrosis [Recovered/Resolved]
  - Dental restoration failure [Recovered/Resolved]
